FAERS Safety Report 7293915-0 (Version None)
Quarter: 2011Q1

REPORT INFORMATION
  Report Type: 
  Country: None (occurrence: None)
  Receive Date: 20110215
  Receipt Date: 20110207
  Transmission Date: 20110831
  Serious: No
  Sender: FDA-Public Use
  Company Number: US-JNJFOC-20110202147

PATIENT
  Age: 9 Year
  Sex: Male

DRUGS (6)
  1. COGENTIN [Concomitant]
     Route: 065
  2. DEPAKOTE [Concomitant]
     Route: 065
  3. STRATTERA [Concomitant]
     Route: 065
  4. WELLBUTRIN [Concomitant]
     Route: 065
  5. TRAZODONE [Concomitant]
     Route: 065
  6. INVEGA [Suspect]
     Indication: SCHIZOPHRENIA
     Route: 048

REACTIONS (3)
  - OFF LABEL USE [None]
  - MANIA [None]
  - DRUG INEFFECTIVE [None]
